FAERS Safety Report 6379460-5 (Version None)
Quarter: 2009Q3

REPORT INFORMATION
  Report Type: 
  Country: None (occurrence: None)
  Receive Date: 20090928
  Receipt Date: 20090921
  Transmission Date: 20100115
  Serious: Yes (Hospitalization)
  Sender: FDA-Public Use
  Company Number: B0592553A

PATIENT
  Sex: Female
  Weight: 53 kg

DRUGS (7)
  1. LAPATINIB [Suspect]
     Indication: BREAST CANCER
     Dosage: 1500MG PER DAY
     Route: 048
     Dates: start: 20090714
  2. TRASTUZUMAB [Suspect]
     Indication: BREAST CANCER
     Route: 042
     Dates: start: 20090310
  3. TOFRANIL [Concomitant]
     Indication: POLYNEUROPATHY
     Dosage: 25MG AT NIGHT
     Route: 048
     Dates: start: 20081211, end: 20090909
  4. ALINAMIN-F [Concomitant]
     Indication: POLYNEUROPATHY
     Dosage: 50MG TWICE PER DAY
     Route: 048
     Dates: start: 20081211, end: 20090909
  5. RINDERON [Concomitant]
     Dates: start: 20090725, end: 20090901
  6. TRAMADOL HYDROCHLORIDE [Concomitant]
     Dosage: 50MG PER DAY
     Dates: start: 20081211, end: 20090911
  7. CODEINE [Concomitant]
     Dosage: 30MG PER DAY
     Dates: start: 20080920

REACTIONS (4)
  - CATHETER RELATED INFECTION [None]
  - HYPOAESTHESIA [None]
  - NEUROPATHY PERIPHERAL [None]
  - PAIN IN EXTREMITY [None]
